FAERS Safety Report 18517434 (Version 2)
Quarter: 2021Q4

REPORT INFORMATION
  Report Type: Spontaneous
  Country: JP (occurrence: JP)
  Receive Date: 20201118
  Receipt Date: 20211227
  Transmission Date: 20220303
  Serious: Yes (Hospitalization)
  Sender: FDA-Public Use
  Company Number: JP-BAYER-2020-244264

PATIENT
  Age: 61 Year
  Sex: Male
  Weight: 69.6 kg

DRUGS (10)
  1. NEXAVAR [Suspect]
     Active Substance: SORAFENIB
     Indication: Hepatocellular carcinoma
     Dosage: DAILY DOSE 800 MG
     Route: 048
     Dates: start: 20160915, end: 20161019
  2. NEXAVAR [Suspect]
     Active Substance: SORAFENIB
     Indication: Metastases to peritoneum
     Dosage: DAILY DOSE 600 MG
     Route: 048
     Dates: start: 20161020, end: 20161119
  3. NEXAVAR [Suspect]
     Active Substance: SORAFENIB
     Indication: Hepatocellular carcinoma
     Dosage: DAILY DOSE 400 MG
     Route: 048
     Dates: start: 20161120, end: 20180719
  4. OLMESARTAN MEDOXOMIL [Concomitant]
     Active Substance: OLMESARTAN MEDOXOMIL
     Indication: Hypertension
     Dosage: DAILY DOSE 10 MG
     Route: 048
     Dates: start: 20150821
  5. AMLODIPINE BESYLATE [Concomitant]
     Active Substance: AMLODIPINE BESYLATE
     Indication: Hypertension
     Dosage: UNK
     Route: 048
     Dates: end: 20180809
  6. FEBUXOSTAT [Concomitant]
     Active Substance: FEBUXOSTAT
     Indication: Hyperuricaemia
     Dosage: DAILY DOSE 10 MG
     Route: 048
     Dates: start: 20150821
  7. BROTIZOLAM [Concomitant]
     Active Substance: BROTIZOLAM
     Indication: Insomnia
     Dosage: DAILY DOSE 0.25 MG
     Route: 048
     Dates: start: 201706
  8. LANSOPRAZOLE [Concomitant]
     Active Substance: LANSOPRAZOLE
     Indication: Varices oesophageal
     Dosage: DAILY DOSE 15 MG
     Route: 048
     Dates: start: 201208
  9. LOPERAMIDE HYDROCHLORIDE [Concomitant]
     Active Substance: LOPERAMIDE HYDROCHLORIDE
     Indication: Diarrhoea
     Dosage: DAILY DOSE 2 MG
     Route: 048
     Dates: start: 201701
  10. SHAKUYAKUKANZOTO [Concomitant]
     Active Substance: HERBALS
     Indication: Muscle spasms
     Dosage: DAILY DOSE 3 PACKETS
     Route: 048
     Dates: start: 201706

REACTIONS (4)
  - Nephropathy toxic [None]
  - Thrombotic microangiopathy [None]
  - Diabetic nephropathy [None]
  - Proteinuria [None]

NARRATIVE: CASE EVENT DATE: 20180815
